FAERS Safety Report 6754626-0 (Version None)
Quarter: 2010Q2

REPORT INFORMATION
  Report Type: 
  Country: None (occurrence: None)
  Receive Date: 20100603
  Receipt Date: 20100526
  Transmission Date: 20101027
  Serious: Yes (Hospitalization)
  Sender: FDA-Public Use
  Company Number: US-BAXTER-2010BH011999

PATIENT
  Age: 41 Year
  Sex: Male
  Weight: 102 kg

DRUGS (10)
  1. DIANEAL [Suspect]
     Indication: PERITONEAL DIALYSIS
     Route: 033
  2. DIANEAL [Suspect]
     Indication: PERITONEAL DIALYSIS
     Route: 033
  3. EXTRANEAL [Suspect]
     Indication: PERITONEAL DIALYSIS
     Route: 033
  4. RENAGEL [Concomitant]
     Indication: ELECTROLYTE IMBALANCE
     Route: 048
  5. RESTORIL [Concomitant]
     Indication: INSOMNIA
     Route: 048
  6. NEPHROCAPS [Concomitant]
     Indication: VITAMIN SUPPLEMENTATION
     Route: 048
  7. SENSIPAR [Concomitant]
     Indication: HYPERPARATHYROIDISM SECONDARY
     Route: 048
  8. PANTOPRAZOLE [Concomitant]
     Indication: GASTROOESOPHAGEAL REFLUX DISEASE
     Route: 048
  9. ROCALTROL [Concomitant]
     Indication: VITAMIN D
     Route: 048
  10. LACTULOSE [Concomitant]
     Indication: LAXATIVE SUPPORTIVE CARE
     Route: 048

REACTIONS (5)
  - ABDOMINAL DISTENSION [None]
  - CONSTIPATION [None]
  - DISCOMFORT [None]
  - UMBILICAL MALFORMATION [None]
  - VOMITING [None]
